FAERS Safety Report 23570730 (Version 1)
Quarter: 2024Q1

REPORT INFORMATION
  Report Type: Spontaneous
  Country: US (occurrence: None)
  Receive Date: 20240226
  Receipt Date: 20240226
  Transmission Date: 20240409
  Serious: Yes (Hospitalization)
  Sender: FDA-Public Use
  Company Number: None

PATIENT
  Sex: Male

DRUGS (11)
  1. VIGABATRIN [Suspect]
     Active Substance: VIGABATRIN
     Indication: Partial seizures
     Dosage: FREQUENCY : TWICE A DAY;?OTHER ROUTE : GASTRIC TUBE;?
     Route: 050
  2. VIGABATRIN [Suspect]
     Active Substance: VIGABATRIN
     Indication: Partial seizures
  3. VIGABATRIN [Suspect]
     Active Substance: VIGABATRIN
     Indication: Partial seizures
  4. KEPPRA [Concomitant]
     Active Substance: LEVETIRACETAM
  5. TOPAMAX [Concomitant]
     Active Substance: TOPIRAMATE
  6. VALINE [Concomitant]
     Active Substance: VALINE
  7. METRONIDAZOLE [Concomitant]
     Active Substance: METRONIDAZOLE
  8. CARGLUMIC ACID [Concomitant]
     Active Substance: CARGLUMIC ACID
  9. OMEPRAZOLE [Concomitant]
     Active Substance: OMEPRAZOLE
  10. BIOTIN [Concomitant]
     Active Substance: BIOTIN
  11. LEVOCARNITINE [Concomitant]
     Active Substance: LEVOCARNITINE

REACTIONS (1)
  - Product supply issue [None]
